FAERS Safety Report 5687702-4 (Version None)
Quarter: 2008Q1

REPORT INFORMATION
  Report Type: 
  Country: None (occurrence: None)
  Receive Date: 20080328
  Receipt Date: 20061006
  Transmission Date: 20080703
  Serious: No
  Sender: FDA-Public Use
  Company Number: US-BAYER-US-2006-030483

PATIENT
  Age: 31 Year
  Sex: Female
  Weight: 78 kg

DRUGS (2)
  1. MIRENA [Suspect]
     Indication: CONTRACEPTION
     Route: 015
     Dates: start: 20020201
  2. FLUCONAZOLE [Concomitant]
     Route: 048
     Dates: start: 20061006, end: 20061006

REACTIONS (2)
  - AMENORRHOEA [None]
  - VULVOVAGINAL MYCOTIC INFECTION [None]
